FAERS Safety Report 7230831-4 (Version None)
Quarter: 2011Q1

REPORT INFORMATION
  Report Type: 
  Country: None (occurrence: None)
  Receive Date: 20110118
  Receipt Date: 20110111
  Transmission Date: 20110831
  Serious: Yes (Death, Other)
  Sender: FDA-Public Use
  Company Number: US-SANOFI-AVENTIS-2011SA002070

PATIENT
  Age: 51 Year
  Sex: Female

DRUGS (13)
  1. CONJUGATED ESTROGEN [Concomitant]
  2. ROFECOXIB [Concomitant]
  3. FERROUS SULFATE [Concomitant]
  4. OXYCONTIN [Concomitant]
  5. FUROSEMIDE [Concomitant]
  6. ALENDRONATE SODIUM [Concomitant]
  7. PREDNISONE [Concomitant]
  8. MEDROXYPROGESTERONE ACETATE [Concomitant]
  9. ARAVA [Suspect]
     Indication: RHEUMATOID ARTHRITIS
     Route: 048
     Dates: start: 20001101, end: 20021201
  10. ETANERCEPT [Suspect]
     Indication: RHEUMATOID ARTHRITIS
     Route: 065
     Dates: start: 20000701, end: 20021201
  11. RIFAMPICIN [Concomitant]
  12. ISONIAZID [Concomitant]
     Dates: start: 20021101
  13. CLARITHROMYCIN [Concomitant]

REACTIONS (9)
  - PYREXIA [None]
  - TUBERCULOSIS [None]
  - RHEUMATOID ARTHRITIS [None]
  - HYPOXIA [None]
  - HYPERHIDROSIS [None]
  - DYSPNOEA [None]
  - PNEUMONIA [None]
  - SILICOSIS [None]
  - COUGH [None]
